FAERS Safety Report 13165788 (Version 1)
Quarter: 2017Q1

REPORT INFORMATION
  Report Type: Spontaneous
  Country: GB (occurrence: GB)
  Receive Date: 20170131
  Receipt Date: 20170131
  Transmission Date: 20170428
  Serious: Yes (Disabling)
  Sender: FDA-Public Use
  Company Number: GB-ACCORD-047745

PATIENT
  Age: 65 Year
  Sex: Male

DRUGS (5)
  1. AMITRIPTYLINE [Suspect]
     Active Substance: AMITRIPTYLINE
     Indication: PRODUCT USED FOR UNKNOWN INDICATION
     Dosage: AT NIGHT
     Dates: start: 20160617
  2. SALBUTAMOL/SALBUTAMOL SULFATE [Concomitant]
     Route: 055
     Dates: start: 20160330
  3. SIRDUPLA [Concomitant]
     Route: 055
     Dates: start: 20160330
  4. TRAMADOL/TRAMADOL HYDROCHLORIDE [Concomitant]
     Dates: start: 20160617
  5. GABAPENTIN. [Concomitant]
     Active Substance: GABAPENTIN
     Dosage: TAKE 1 IN THE MORNING, 1 AT LUNCHTIME AND 1 AT NIGHT
     Dates: start: 20160517

REACTIONS (2)
  - Feeling abnormal [Unknown]
  - Nightmare [Recovered/Resolved]

NARRATIVE: CASE EVENT DATE: 20160617
